FAERS Safety Report 13052469 (Version 2)
Quarter: 2017Q1

REPORT INFORMATION
  Report Type: Spontaneous
  Country: DK (occurrence: DK)
  Receive Date: 20161221
  Receipt Date: 20170306
  Transmission Date: 20170428
  Serious: Yes (Other)
  Sender: FDA-Public Use
  Company Number: DK-009507513-1612DNK008622

PATIENT
  Age: 36 Year
  Sex: Male
  Weight: 65 kg

DRUGS (4)
  1. NOXAFIL [Suspect]
     Active Substance: POSACONAZOLE
     Indication: MUCORMYCOSIS
     Dosage: 2 X 200MG
     Route: 048
     Dates: start: 20160506, end: 20160903
  2. POSACONAZOLE [Interacting]
     Active Substance: POSACONAZOLE
     Indication: MUCORMYCOSIS
     Dosage: 450 MG, QD
     Route: 042
     Dates: start: 20161012
  3. NOXAFIL [Interacting]
     Active Substance: POSACONAZOLE
     Indication: MUCORMYCOSIS
     Dosage: 3 X 300 MG
     Route: 048
     Dates: start: 20160903, end: 20161011
  4. AMBISOME [Interacting]
     Active Substance: AMPHOTERICIN B
     Dosage: UNK
     Dates: start: 20160308

REACTIONS (9)
  - Dialysis [Not Recovered/Not Resolved]
  - Gastrointestinal tube insertion [Unknown]
  - Blood alkaline phosphatase increased [Unknown]
  - Drug level below therapeutic [Recovered/Resolved]
  - Gastrointestinal disorder [Unknown]
  - Drug level below therapeutic [Unknown]
  - Drug interaction [Unknown]
  - Prescribed overdose [Unknown]
  - Drug level above therapeutic [Recovered/Resolved]

NARRATIVE: CASE EVENT DATE: 2016
